FAERS Safety Report 24350083 (Version 2)
Quarter: 2024Q3

REPORT INFORMATION
  Report Type: Spontaneous
  Country: FR (occurrence: FR)
  Receive Date: 20240923
  Receipt Date: 20240925
  Transmission Date: 20241017
  Serious: Yes (Death, Hospitalization)
  Sender: BOEHRINGER INGELHEIM
  Company Number: None

PATIENT
  Age: 90 Year
  Sex: Female
  Weight: 60 kg

DRUGS (17)
  1. ALTEPLASE [Suspect]
     Active Substance: ALTEPLASE
     Indication: Ischaemic stroke
     Route: 042
     Dates: start: 20240227, end: 20240227
  2. ALTEPLASE [Suspect]
     Active Substance: ALTEPLASE
     Route: 042
     Dates: start: 20240227, end: 20240227
  3. PRADAXA [Suspect]
     Active Substance: DABIGATRAN ETEXILATE MESYLATE
     Indication: Atrial fibrillation
     Route: 048
     Dates: start: 20221114, end: 20240223
  4. PARACETAMOL B BRAUN 10 mg/ml, infusion solution [Concomitant]
     Indication: Pain
     Route: 042
  5. DISCOTRINE 5 mg/24 heures, transdermal device [Concomitant]
     Indication: Myocardial infarction
     Route: 062
  6. CHLORHYDRATE DE METOCLOPRAMIDE RENAUDIN 10 mg/2 ml, solution for injec [Concomitant]
     Indication: Prophylaxis of nausea and vomiting
     Route: 042
     Dates: start: 20240228
  7. URAPIDIL STRAGEN 50 mg/10 ml, injectable solution [Concomitant]
     Indication: Hypertension
     Dosage: 1 DOSAGE FORM
     Route: 042
     Dates: start: 20240228
  8. FUROSEMIDE KALCEKS 20 mg/2 mL, solution for injection/infusion [Concomitant]
     Indication: Hypertension
     Route: 042
  9. OXAZEPAM [Concomitant]
     Active Substance: OXAZEPAM
     Indication: Product used for unknown indication
     Route: 048
  10. PRAVASTATIN SODIUM [Concomitant]
     Active Substance: PRAVASTATIN SODIUM
     Indication: Dyslipidaemia
     Route: 048
  11. NITROGLYCERIN [Concomitant]
     Active Substance: NITROGLYCERIN
     Indication: Myocardial infarction
     Route: 062
  12. SOTALOL [Concomitant]
     Active Substance: SOTALOL\SOTALOL HYDROCHLORIDE
     Indication: Hypertension
     Route: 048
  13. ACETAMINOPHEN [Concomitant]
     Active Substance: ACETAMINOPHEN
     Indication: Pain
     Route: 048
  14. RAMIPRIL [Concomitant]
     Active Substance: RAMIPRIL
     Indication: Hypertension
     Route: 048
  15. POTASSIUM CHLORIDE [Concomitant]
     Active Substance: POTASSIUM CHLORIDE
     Indication: Hypokalaemia
     Route: 048
  16. FUROSEMIDE [Concomitant]
     Active Substance: FUROSEMIDE
     Indication: Hypertension
     Route: 048
  17. PANTOPRAZOLE [Concomitant]
     Active Substance: PANTOPRAZOLE
     Indication: Product used for unknown indication
     Route: 048

REACTIONS (4)
  - Cerebral haemorrhage [Fatal]
  - Periorbital haematoma [Not Recovered/Not Resolved]
  - Condition aggravated [Not Recovered/Not Resolved]
  - Periorbital haematoma [Not Recovered/Not Resolved]

NARRATIVE: CASE EVENT DATE: 20240223
